FAERS Safety Report 7621079-X (Version None)
Quarter: 2011Q3

REPORT INFORMATION
  Report Type: 
  Country: None (occurrence: None)
  Receive Date: 20110719
  Receipt Date: 20100727
  Transmission Date: 20111222
  Serious: No
  Sender: FDA-Public Use
  Company Number: US-KINGPHARMUSA00001-K201001115

PATIENT
  Age: 58 Year
  Sex: Male
  Weight: 68.481 kg

DRUGS (3)
  1. LEVOXYL [Suspect]
     Indication: HYPOTHYROIDISM
     Dosage: 125 MCG, QD
     Route: 048
     Dates: start: 20100101, end: 20100101
  2. LEVOXYL [Suspect]
     Indication: BLOOD THYROID STIMULATING HORMONE INCREASED
     Dosage: 100 MCG, QD
     Route: 048
     Dates: start: 20100201, end: 20100101
  3. LEVOXYL [Suspect]
     Dosage: 150 MCG, QD
     Route: 048
     Dates: start: 20100101, end: 20100101

REACTIONS (2)
  - DRUG INEFFECTIVE [None]
  - BLOOD THYROID STIMULATING HORMONE INCREASED [None]
